FAERS Safety Report 24588884 (Version 1)
Quarter: 2024Q4

REPORT INFORMATION
  Report Type: Spontaneous
  Country: FR (occurrence: FR)
  Receive Date: 20241107
  Receipt Date: 20241107
  Transmission Date: 20250114
  Serious: Yes (Other)
  Sender: PFIZER
  Company Number: FR-ROCHE-3239805

PATIENT
  Age: 68 Year
  Sex: Female
  Weight: 83.7 kg

DRUGS (16)
  1. PALBOCICLIB [Suspect]
     Active Substance: PALBOCICLIB
     Indication: Breast cancer metastatic
     Dosage: START DATE OF MOST RECENT DOSE OF STUDY DRUG PRIOR TO AE 07/DEC/2022 AT 125 MG
     Route: 048
     Dates: start: 20220405
  2. GIREDESTRANT [Suspect]
     Active Substance: GIREDESTRANT
     Indication: Breast cancer metastatic
     Dosage: START DATE OF MOST RECENT DOSE OF STUDY DRUG PRIOR TO AE 07/DEC/2022
     Route: 048
     Dates: start: 20220405
  3. LETROZOLE [Suspect]
     Active Substance: LETROZOLE
     Indication: Breast cancer metastatic
     Dosage: START DATE OF MOST RECENT DOSE OF STUDY DRUG PRIOR TO AE WAS 07/DEC/2022
     Route: 048
     Dates: start: 20220405
  4. LETROZOLE [Suspect]
     Active Substance: LETROZOLE
     Dosage: UNK
     Route: 048
     Dates: start: 20221222, end: 20230124
  5. CAPECITABINE [Concomitant]
     Active Substance: CAPECITABINE
     Dosage: UNK
     Route: 048
     Dates: start: 20230130, end: 20230331
  6. CITALOPRAM [Concomitant]
     Active Substance: CITALOPRAM
     Indication: Depression
     Dosage: 20 MG, 1X/DAY
     Route: 048
     Dates: start: 2002
  7. ALPRAZOLAM [Concomitant]
     Active Substance: ALPRAZOLAM
     Indication: Depression
     Dosage: 0.25 MG, 1X/DAY
     Route: 048
     Dates: start: 2002
  8. TRANSIPEG [MACROGOL 3350;POTASSIUM CHLORIDE;SODIUM BICARBONATE;SODIUM [Concomitant]
     Indication: Constipation
     Dosage: UNK UNK, 1X/DAY
     Route: 048
     Dates: start: 20220201
  9. ACETAMINOPHEN [Concomitant]
     Active Substance: ACETAMINOPHEN
     Indication: Pain
     Dosage: 4 G, AS NEEDED
     Route: 048
     Dates: start: 2002
  10. DENOSUMAB [Concomitant]
     Active Substance: DENOSUMAB
     Indication: Metastasis
     Dosage: 120 MG, MONTHLY
     Route: 058
     Dates: start: 20220420
  11. CALCIUM [Concomitant]
     Active Substance: CALCIUM
     Indication: Hypocalcaemia
     Dosage: 500 MG, 1X/DAY
     Route: 048
     Dates: start: 20220419
  12. VITAMIN D3 [Concomitant]
     Active Substance: CHOLECALCIFEROL
     Indication: Hypocalcaemia
     Dosage: 400 MG, 1X/DAY
     Route: 048
     Dates: start: 20220419
  13. ERYTHROPOIETIN [Concomitant]
     Active Substance: ERYTHROPOIETIN
     Indication: Anaemia
     Dosage: 30000 IU, WEEKLY
     Route: 058
     Dates: start: 20221130, end: 20221228
  14. TAXOL [Concomitant]
     Active Substance: PACLITAXEL
     Dosage: UNK
     Dates: start: 20230419, end: 20230921
  15. EXEMESTANE [Concomitant]
     Active Substance: EXEMESTANE
     Dosage: UNK
     Dates: start: 20231030, end: 20240108
  16. FAM-TRASTUZUMAB DERUXTECAN-NXKI [Concomitant]
     Active Substance: FAM-TRASTUZUMAB DERUXTECAN-NXKI
     Dosage: UNK
     Dates: start: 20240115

REACTIONS (1)
  - Pulmonary embolism [Recovered/Resolved]

NARRATIVE: CASE EVENT DATE: 20221208
